FAERS Safety Report 6130419-2 (Version None)
Quarter: 2009Q1

REPORT INFORMATION
  Report Type: 
  Country: None (occurrence: None)
  Receive Date: 20090324
  Receipt Date: 20090313
  Transmission Date: 20090719
  Serious: Yes (Other)
  Sender: FDA-Public Use
  Company Number: FR-ELI_LILLY_AND_COMPANY-FR200903003696

PATIENT
  Age: 44 Year
  Sex: Female
  Weight: 30 kg

DRUGS (2)
  1. ZYPREXA [Suspect]
     Dosage: 5 MG, DAILY (1/D)
     Route: 048
     Dates: end: 20090101
  2. HALDOL [Concomitant]

REACTIONS (2)
  - CARDIAC ARREST [None]
  - EPILEPSY [None]
